FAERS Safety Report 5052402-0 (Version None)
Quarter: 2006Q3

REPORT INFORMATION
  Report Type: 
  Country: None (occurrence: None)
  Receive Date: 20060717
  Receipt Date: 20060627
  Transmission Date: 20061208
  Serious: Yes (Other)
  Sender: FDA-Public Use
  Company Number: PHBS2006BR09884

PATIENT
  Age: 51 Year
  Sex: Female
  Weight: 54 kg

DRUGS (3)
  1. TEGRETOL [Suspect]
     Indication: EPILEPSY
     Dosage: 200 MG, BID
     Route: 048
     Dates: start: 19960131, end: 20051001
  2. TEGRETOL [Suspect]
     Dosage: 200 MG/DAY
     Route: 048
  3. TEGRETOL [Suspect]
     Dosage: 200 MG, TID
     Route: 048
     Dates: end: 20051001

REACTIONS (13)
  - AMNESIA [None]
  - ANGINA PECTORIS [None]
  - CHEST PAIN [None]
  - CONVULSION [None]
  - DISTURBANCE IN ATTENTION [None]
  - HAEMANGIOMA OF LIVER [None]
  - INSOMNIA [None]
  - MEMORY IMPAIRMENT [None]
  - MENOPAUSAL SYMPTOMS [None]
  - METRORRHAGIA [None]
  - PSYCHOMOTOR SKILLS IMPAIRED [None]
  - ROAD TRAFFIC ACCIDENT [None]
  - SOMNOLENCE [None]
